FAERS Safety Report 24265416 (Version 2)
Quarter: 2024Q4

REPORT INFORMATION
  Report Type: Spontaneous
  Country: US (occurrence: US)
  Receive Date: 20240829
  Receipt Date: 20241106
  Transmission Date: 20250114
  Serious: No
  Sender: JOHNSON AND JOHNSON
  Company Number: US-JNJFOC-20240873028

PATIENT
  Age: 34 Year
  Sex: Female
  Weight: 74.547 kg

DRUGS (10)
  1. INVEGA TRINZA [Suspect]
     Active Substance: PALIPERIDONE PALMITATE
     Indication: Mental disorder
     Dosage: 410 MG/1.32 ML
     Route: 030
     Dates: start: 2021
  2. INVEGA TRINZA [Suspect]
     Active Substance: PALIPERIDONE PALMITATE
     Indication: Affective disorder
  3. INVEGA TRINZA [Suspect]
     Active Substance: PALIPERIDONE PALMITATE
  4. LORAZEPAM [Concomitant]
     Active Substance: LORAZEPAM
     Indication: Anxiety
     Dosage: 1 TAB
     Dates: start: 2020
  5. SEROQUEL [Concomitant]
     Active Substance: QUETIAPINE FUMARATE
     Indication: Mental disorder
     Dosage: 1 TAB
     Dates: start: 2016
  6. SEROQUEL [Concomitant]
     Active Substance: QUETIAPINE FUMARATE
     Indication: Affective disorder
  7. VALBENAZINE TOSYLATE [Concomitant]
     Active Substance: VALBENAZINE TOSYLATE
     Indication: Tardive dyskinesia
     Dosage: 1 TAB
     Dates: start: 2023
  8. PROPRANOLOL [Concomitant]
     Active Substance: PROPRANOLOL HYDROCHLORIDE
     Indication: Blood pressure measurement
     Dates: start: 2023
  9. PROPRANOLOL [Concomitant]
     Active Substance: PROPRANOLOL HYDROCHLORIDE
     Indication: Anxiety
  10. BENZTROPINE [Concomitant]
     Active Substance: BENZTROPINE
     Indication: Extrapyramidal disorder
     Dosage: 1 TAB
     Dates: start: 2012

REACTIONS (3)
  - Accidental exposure to product [Unknown]
  - Needle issue [Unknown]
  - Inappropriate schedule of product administration [Unknown]

NARRATIVE: CASE EVENT DATE: 20240822
